FAERS Safety Report 21822956 (Version 2)
Quarter: 2024Q1

REPORT INFORMATION
  Report Type: Spontaneous
  Country: US (occurrence: US)
  Receive Date: 20230105
  Receipt Date: 20240104
  Transmission Date: 20240410
  Serious: Yes (Hospitalization)
  Sender: FDA-Public Use
  Company Number: US-AMNEAL PHARMACEUTICALS-2022-AMRX-02509

PATIENT
  Age: 37 Year
  Sex: Female
  Weight: 67 kg

DRUGS (11)
  1. ACTIVELLA [Suspect]
     Active Substance: ESTRADIOL\NORETHINDRONE ACETATE
     Indication: Uterine leiomyoma
     Dosage: UNK
     Route: 048
     Dates: start: 20181208, end: 20191106
  2. ACTIVELLA [Suspect]
     Active Substance: ESTRADIOL\NORETHINDRONE ACETATE
     Dosage: EVERY 1 DAY
     Route: 048
     Dates: start: 20191106
  3. ELAGOLIX [Suspect]
     Active Substance: ELAGOLIX
     Indication: Uterine leiomyoma
     Dosage: 300 MG PM DOSE, EVERY 1 DAYS
     Route: 048
     Dates: start: 20181208, end: 20191106
  4. ELAGOLIX [Suspect]
     Active Substance: ELAGOLIX
     Dosage: UNK
     Route: 048
     Dates: start: 20191106
  5. ZYRTEC [Concomitant]
     Active Substance: CETIRIZINE HYDROCHLORIDE
     Indication: Seasonal allergy
     Route: 048
  6. CALCIUM [Concomitant]
     Active Substance: CALCIUM
     Dosage: 500 MG, 1 IN 1 D
     Route: 048
     Dates: start: 201803
  7. VITAMIN B12 [Concomitant]
     Active Substance: CYANOCOBALAMIN
     Dosage: 1 TABLET, 1 IN 1 D
     Route: 048
     Dates: start: 20180801
  8. ERGOCALCIFEROL [Concomitant]
     Active Substance: ERGOCALCIFEROL
     Indication: Vitamin D deficiency
     Dosage: 3000 UNIT, 1 IN 1 D
     Route: 048
     Dates: start: 201807
  9. ADVIL [Concomitant]
     Active Substance: IBUPROFEN
     Indication: Abdominal pain lower
     Dosage: 2 TABLET, 1 IN 1 AS REQUIRED
     Route: 048
     Dates: start: 20190114
  10. METFORMIN [Concomitant]
     Active Substance: METFORMIN HYDROCHLORIDE
     Indication: Type 2 diabetes mellitus
     Dosage: 500 MG, 2 IN 1 D
     Route: 048
     Dates: start: 20220817
  11. VITAMIN COMP [Concomitant]
     Indication: Supplementation therapy
     Dosage: 1 DOSAGE FORM EVERY 1 DAYS
     Route: 065
     Dates: start: 2006

REACTIONS (1)
  - Heavy menstrual bleeding [Recovered/Resolved]

NARRATIVE: CASE EVENT DATE: 20220820
